FAERS Safety Report 21640211 (Version 2)
Quarter: 2022Q4

REPORT INFORMATION
  Report Type: Report from Study
  Country: US (occurrence: US)
  Receive Date: 20221124
  Receipt Date: 20221212
  Transmission Date: 20230112
  Serious: Yes (Other)
  Sender: FDA-Public Use
  Company Number: US-002147023-NVSC2022US261160

PATIENT
  Age: 73 Year
  Sex: Female

DRUGS (2)
  1. LEQVIO [Suspect]
     Active Substance: INCLISIRAN SODIUM
     Indication: Product used for unknown indication
     Dosage: UNK
     Route: 058
     Dates: start: 20221108
  2. RANEXA [Suspect]
     Active Substance: RANOLAZINE
     Indication: Product used for unknown indication
     Dosage: UNK
     Route: 065

REACTIONS (13)
  - Arterial rupture [Unknown]
  - Myocardial infarction [Unknown]
  - Blood pressure increased [Unknown]
  - Feeling abnormal [Unknown]
  - Memory impairment [Unknown]
  - Chest pain [Recovered/Resolved]
  - General physical health deterioration [Unknown]
  - Cardiac disorder [Unknown]
  - COVID-19 [Unknown]
  - Fatigue [Unknown]
  - Arteriosclerosis [Unknown]
  - Injection site pain [Unknown]
  - Diarrhoea [Unknown]

NARRATIVE: CASE EVENT DATE: 20221108
